FAERS Safety Report 15298511 (Version 1)
Quarter: 2018Q3

REPORT INFORMATION
  Report Type: Spontaneous
  Country: US (occurrence: US)
  Receive Date: 20180820
  Receipt Date: 20180820
  Transmission Date: 20181010
  Serious: No
  Sender: FDA-Public Use
  Company Number: US-VIFOR (INTERNATIONAL) INC.-VIT-2018-08183

PATIENT
  Sex: Male

DRUGS (12)
  1. TEMAZEPAM. [Concomitant]
     Active Substance: TEMAZEPAM
  2. STIOLTO RESPIMAT [Concomitant]
     Active Substance: OLODATEROL HYDROCHLORIDE\TIOTROPIUM BROMIDE MONOHYDRATE
  3. RANEXA [Concomitant]
     Active Substance: RANOLAZINE
  4. MECLOZINE HYDROCHLORIDE [Concomitant]
     Active Substance: MECLOZINE DIHYDROCHLORIDE
  5. METOPROLOL SUCCINATE. [Concomitant]
     Active Substance: METOPROLOL SUCCINATE
  6. LEVODOPA~~CARBIDOPA [Concomitant]
  7. COLCRYS [Concomitant]
     Active Substance: COLCHICINE
  8. VELTASSA [Suspect]
     Active Substance: PATIROMER
     Indication: HYPERKALAEMIA
     Route: 048
     Dates: start: 20160824
  9. LORATADINE. [Concomitant]
     Active Substance: LORATADINE
  10. VENTOLIN HFA [Concomitant]
     Active Substance: ALBUTEROL SULFATE
  11. ALLOPURINOL. [Concomitant]
     Active Substance: ALLOPURINOL
  12. PROAIR HFA [Concomitant]
     Active Substance: ALBUTEROL SULFATE

REACTIONS (1)
  - Malaise [Unknown]
